FAERS Safety Report 23835834 (Version 1)
Quarter: 2024Q2

REPORT INFORMATION
  Report Type: Spontaneous
  Country: CA (occurrence: CA)
  Receive Date: 20240509
  Receipt Date: 20240509
  Transmission Date: 20240716
  Serious: Yes (Hospitalization, Other)
  Sender: FDA-Public Use
  Company Number: CA-TEVA-VS-3195143

PATIENT
  Age: 57 Year
  Sex: Male

DRUGS (7)
  1. PANTOPRAZOLE SODIUM [Suspect]
     Active Substance: PANTOPRAZOLE SODIUM
     Indication: Product used for unknown indication
     Dosage: DOSAGE FORM:TABLET (DELAYED- RELEASE)
     Route: 048
  2. OZEMPIC [Suspect]
     Active Substance: SEMAGLUTIDE
     Indication: Type 2 diabetes mellitus
     Dosage: OZEMPIC MULTIDOSE PREFILLED PEN DISPENSES 0.25MG OR 0.5MG DOSE/ DOSAGE FORM:SOLUTION SUBCUTANEOUS
     Route: 058
  3. ACYCLOVIR [Concomitant]
     Active Substance: ACYCLOVIR
     Indication: Product used for unknown indication
     Dosage: DOSAGE FORM: NOT SPECIFIED
  4. IBUPROFEN [Concomitant]
     Active Substance: IBUPROFEN
     Indication: Product used for unknown indication
     Dosage: DOSAGE FORM: NOT SPECIFIED
  5. METFORMIN [Concomitant]
     Active Substance: METFORMIN HYDROCHLORIDE
     Indication: Product used for unknown indication
  6. PERINDOPRIL [Concomitant]
     Active Substance: PERINDOPRIL
     Indication: Product used for unknown indication
     Dosage: DOSAGE FORM: NOT SPECIFIED
  7. ROSUVASTATIN [Concomitant]
     Active Substance: ROSUVASTATIN
     Indication: Product used for unknown indication
     Route: 065

REACTIONS (4)
  - Acute kidney injury [Recovering/Resolving]
  - Dialysis [Recovering/Resolving]
  - Metabolic acidosis [Recovering/Resolving]
  - Tubulointerstitial nephritis [Recovering/Resolving]
